FAERS Safety Report 5469233-X (Version None)
Quarter: 2007Q3

REPORT INFORMATION
  Report Type: 
  Country: None (occurrence: None)
  Receive Date: 20070927
  Receipt Date: 20070920
  Transmission Date: 20080115
  Serious: Yes (Death)
  Sender: FDA-Public Use
  Company Number: US-AVENTIS-200716664US

PATIENT
  Sex: Male

DRUGS (4)
  1. TAXOTERE [Suspect]
     Dosage: DOSE: UNK
  2. RADIATION [Suspect]
     Dosage: DOSE: UNK
  3. CISPLATIN [Concomitant]
     Dosage: DOSE: UNK
  4. ETOPOSIDE [Concomitant]
     Dosage: DOSE: UNK

REACTIONS (1)
  - INTERSTITIAL LUNG DISEASE [None]
